FAERS Safety Report 24036863 (Version 1)
Quarter: 2024Q3

REPORT INFORMATION
  Report Type: Spontaneous
  Country: US (occurrence: US)
  Receive Date: 20240701
  Receipt Date: 20240701
  Transmission Date: 20241017
  Serious: No
  Sender: CSL BEHRING
  Company Number: US-BEH-2024173888

PATIENT
  Sex: Female

DRUGS (1)
  1. HIZENTRA [Suspect]
     Active Substance: HUMAN IMMUNOGLOBULIN G
     Indication: Hypogammaglobulinaemia
     Dosage: 18 G, QOW
     Route: 058
     Dates: start: 202304

REACTIONS (3)
  - Product storage error [Unknown]
  - Infusion site pain [Recovered/Resolved]
  - Infusion site pruritus [Recovered/Resolved]
